FAERS Safety Report 10149689 (Version 1)
Quarter: 2014Q2

REPORT INFORMATION
  Report Type: Spontaneous
  Country: FR (occurrence: FR)
  Receive Date: 20140502
  Receipt Date: 20140502
  Transmission Date: 20141212
  Serious: Yes (Hospitalization)
  Sender: FDA-Public Use
  Company Number: FR-ELI_LILLY_AND_COMPANY-FR201404008369

PATIENT
  Age: 61 Year
  Sex: Female

DRUGS (1)
  1. GEMZAR [Suspect]
     Indication: VAGINAL CANCER METASTATIC
     Dosage: 1200 MG, CYCLICAL
     Route: 042
     Dates: start: 20131108, end: 20131115

REACTIONS (6)
  - Hypokalaemia [Recovered/Resolved]
  - Atrial fibrillation [Recovered/Resolved]
  - Thrombocytopenia [Recovered/Resolved]
  - Vomiting [Recovered/Resolved]
  - Vertigo [Unknown]
  - Off label use [Unknown]
